FAERS Safety Report 6934816-4 (Version None)
Quarter: 2010Q3

REPORT INFORMATION
  Report Type: 
  Country: None (occurrence: None)
  Receive Date: 20100820
  Receipt Date: 20100806
  Transmission Date: 20110219
  Serious: Yes (Hospitalization)
  Sender: FDA-Public Use
  Company Number: PHHY2010MX52315

PATIENT
  Sex: Male

DRUGS (2)
  1. RITALIN [Suspect]
     Indication: ANXIETY
     Dosage: 0.5 DF, QD
     Route: 048
     Dates: start: 20100401
  2. RITALIN [Suspect]
     Dosage: 1 DF, QD
     Route: 048
     Dates: start: 20100601, end: 20100607

REACTIONS (2)
  - ANXIETY [None]
  - HEADACHE [None]
